FAERS Safety Report 8168871-3 (Version None)
Quarter: 2012Q1

REPORT INFORMATION
  Report Type: 
  Country: None (occurrence: None)
  Receive Date: 20120227
  Receipt Date: 20120217
  Transmission Date: 20120608
  Serious: Yes (Other)
  Sender: FDA-Public Use
  Company Number: US-BAYER-2012-007323

PATIENT
  Age: 54 Year
  Sex: Male
  Weight: 67.12 kg

DRUGS (13)
  1. KEPPRA [Concomitant]
     Indication: CONVULSION
     Dosage: 500 MG, BID
     Dates: start: 20080101
  2. NOVOLIN [INSULIN] [Concomitant]
     Indication: DIABETES MELLITUS
     Dosage: 11 UNITS QAM/QPM; 14 UNITS QHS (QAM /QPM /QHS)
     Route: 058
     Dates: start: 20080101
  3. BLINDED AFLIBERCEPT [Suspect]
     Indication: DIABETIC RETINAL OEDEMA
     Dosage: 3 DOSES OF MASKED VEGF TRAP-EYE OR LASER (Q4WKS/Q8WKS)
     Route: 031
     Dates: start: 20111109
  4. SIMVASTATIN [Concomitant]
     Indication: HYPERCHOLESTEROLAEMIA
     Dosage: 40 MG, QD
     Route: 048
     Dates: start: 20080101
  5. METOCLOPRAMIDE [Concomitant]
     Indication: GASTROOESOPHAGEAL REFLUX DISEASE
     Dosage: 10 MG, BID
     Route: 048
     Dates: start: 20080101
  6. HYDROCHLOROTHIAZIDE [Concomitant]
     Indication: HYPERTENSION
     Dosage: 25 MG, QD
     Route: 048
     Dates: start: 20080101
  7. HYDROCODONE [Concomitant]
     Indication: BACK PAIN
     Dosage: 7/500 MG (QID PRN)
     Route: 048
     Dates: start: 20080101
  8. ACETYLSALICYLIC ACID SRT [Suspect]
     Indication: CARDIOVASCULAR EVENT PROPHYLAXIS
     Dosage: 81 MG, QD
     Route: 048
     Dates: start: 20080101
  9. LISINOPRIL [Concomitant]
     Indication: HYPERTENSION
     Dosage: 20 MG, QD
     Route: 048
     Dates: start: 20080101
  10. PLAVIX [Suspect]
     Indication: CARDIOVASCULAR EVENT PROPHYLAXIS
     Dosage: 75 MG, QD
     Route: 048
     Dates: start: 20080101
  11. ZOLOFT [Concomitant]
     Indication: DEPRESSION
     Dosage: 50 MG, QAM
     Route: 048
     Dates: start: 20080101
  12. GEMFIBROZIL [Concomitant]
     Indication: HYPERCHOLESTEROLAEMIA
     Dosage: 600 MG, BID
     Route: 048
     Dates: start: 20080101
  13. METFORMIN HCL [Concomitant]
     Indication: DIABETES MELLITUS
     Dosage: 500 MG, BID
     Route: 048
     Dates: start: 20080101

REACTIONS (1)
  - VITREOUS HAEMORRHAGE [None]
